FAERS Safety Report 8524553-7 (Version None)
Quarter: 2012Q3

REPORT INFORMATION
  Report Type: 
  Country: None (occurrence: None)
  Receive Date: 20120720
  Receipt Date: 20120706
  Transmission Date: 20120928
  Serious: Yes (Hospitalization, Other)
  Sender: FDA-Public Use
  Company Number: JP-ROCHE-1082811

PATIENT
  Sex: Male
  Weight: 63 kg

DRUGS (12)
  1. GASMOTIN [Concomitant]
     Route: 048
     Dates: end: 20120613
  2. EXFORGE [Concomitant]
     Dosage: DOSAGE IS UNCERTAIN.
     Route: 048
     Dates: end: 20120613
  3. OMEPRAZOLE [Concomitant]
     Route: 048
     Dates: end: 20120613
  4. PURSENNID [Concomitant]
     Route: 048
     Dates: end: 20120613
  5. DOXAZON [Concomitant]
     Route: 048
     Dates: end: 20120613
  6. PEGASYS [Suspect]
     Indication: HEPATITIS C
     Route: 058
     Dates: start: 20111007, end: 20120608
  7. ISOSORBIDE MONONITRATE [Concomitant]
     Route: 048
     Dates: end: 20120613
  8. HEPARIN [Concomitant]
     Route: 042
  9. ASPIRIN [Concomitant]
     Route: 048
     Dates: start: 20111001, end: 20120613
  10. MIRCERA [Suspect]
     Indication: NEPHROGENIC ANAEMIA
     Route: 042
     Dates: start: 20120528, end: 20120611
  11. ALFAROL [Concomitant]
     Dosage: FORM:POR
     Route: 048
     Dates: end: 20120613
  12. ALOGLIPTIN BENZOATE [Concomitant]
     Dosage: NESINA
     Route: 048
     Dates: end: 20120613

REACTIONS (3)
  - MALAISE [None]
  - CEREBRAL HAEMORRHAGE [None]
  - BLOOD PRESSURE INCREASED [None]
